FAERS Safety Report 14715607 (Version 3)
Quarter: 2018Q2

REPORT INFORMATION
  Report Type: Spontaneous
  Country: JP (occurrence: JP)
  Receive Date: 20180404
  Receipt Date: 20180518
  Transmission Date: 20180711
  Serious: Yes (Other)
  Sender: FDA-Public Use
  Company Number: JP-SUCAMPO PHARMACEUTICALS INC.-SPI201800339

PATIENT

DRUGS (5)
  1. DEPROMEL [Concomitant]
     Active Substance: FLUVOXAMINE
     Indication: PSYCHOTIC DISORDER
     Dosage: 50 MG, BID
     Route: 048
  2. CYMBALTA [Concomitant]
     Active Substance: DULOXETINE HYDROCHLORIDE
     Indication: PSYCHOTIC DISORDER
     Dosage: 40 MG, QD
     Route: 048
  3. AMITIZA [Suspect]
     Active Substance: LUBIPROSTONE
     Indication: CONSTIPATION
     Dosage: 24 MCG, BID
     Route: 048
     Dates: end: 20180323
  4. RISPERDAL [Concomitant]
     Active Substance: RISPERIDONE
     Indication: PSYCHOTIC DISORDER
     Dosage: 2 MG, BID
     Route: 048
  5. UNKNOWN [Concomitant]
     Active Substance: UNSPECIFIED INGREDIENT
     Indication: PSYCHOTIC DISORDER
     Dosage: 25 MG, QD
     Route: 048

REACTIONS (3)
  - Renal disorder [Not Recovered/Not Resolved]
  - Blood creatinine increased [Not Recovered/Not Resolved]
  - Beta 2 microglobulin urine increased [Not Recovered/Not Resolved]

NARRATIVE: CASE EVENT DATE: 20180316
